FAERS Safety Report 6982745-2 (Version None)
Quarter: 2010Q3

REPORT INFORMATION
  Report Type: 
  Country: None (occurrence: None)
  Receive Date: 20100914
  Receipt Date: 20100319
  Transmission Date: 20110219
  Serious: Yes (Other)
  Sender: FDA-Public Use
  Company Number: US-PFIZER INC-2010036683

PATIENT
  Sex: Male

DRUGS (4)
  1. LYRICA [Suspect]
     Indication: NEUROPATHY PERIPHERAL
     Dosage: 50MG IN MORNING AND 150MG AT NIGHT
     Route: 048
  2. LYRICA [Suspect]
     Indication: PAIN IN EXTREMITY
  3. LYRICA [Suspect]
     Indication: BURNING SENSATION
  4. KLONOPIN [Concomitant]
     Dosage: 0.5 MG, UNK

REACTIONS (2)
  - ARTHRALGIA [None]
  - MYALGIA [None]
